FAERS Safety Report 4644901-8 (Version None)
Quarter: 2005Q2

REPORT INFORMATION
  Report Type: 
  Country: None (occurrence: None)
  Receive Date: 20050422
  Receipt Date: 20050413
  Transmission Date: 20051028
  Serious: Yes (Hospitalization, Other)
  Sender: FDA-Public Use
  Company Number: CIP05000584

PATIENT
  Age: 77 Year
  Sex: Female

DRUGS (2)
  1. ACTONEL [Suspect]
     Dosage: 35 MG ONCE WEEKLY, ORAL
     Route: 048
  2. LIPITOR [Concomitant]

REACTIONS (3)
  - HIATUS HERNIA [None]
  - OESOPHAGITIS [None]
  - UPPER GASTROINTESTINAL HAEMORRHAGE [None]
